FAERS Safety Report 15771228 (Version 2)
Quarter: 2019Q1

REPORT INFORMATION
  Report Type: Spontaneous
  Country: ZA (occurrence: ZA)
  Receive Date: 20181228
  Receipt Date: 20190318
  Transmission Date: 20190417
  Serious: Yes (Disabling)
  Sender: FDA-Public Use
  Company Number: ZA-PFIZER INC-2018530431

PATIENT
  Sex: Female
  Weight: 48 kg

DRUGS (6)
  1. SALAZOPYRIN [Suspect]
     Active Substance: SULFASALAZINE
     Dosage: 200 MG, UNK
     Dates: start: 2015, end: 20161121
  2. METHOTREXATE. [Suspect]
     Active Substance: METHOTREXATE
     Dosage: 10 MG, WEEKLY
     Dates: start: 20161121
  3. CYCLOSPORIN [Suspect]
     Active Substance: CYCLOSPORINE
     Dosage: UNK
  4. METHOTREXATE. [Suspect]
     Active Substance: METHOTREXATE
     Dosage: 25 MG, WEEKLY
     Dates: start: 2000
  5. ARAVA [Suspect]
     Active Substance: LEFLUNOMIDE
     Dosage: 20 MG, UNK
     Dates: start: 20161121
  6. CHLOROQUINE. [Suspect]
     Active Substance: CHLOROQUINE
     Dosage: 1.5 G, 2X/DAY
     Dates: start: 2015, end: 20161121

REACTIONS (2)
  - Wheelchair user [Unknown]
  - Treatment failure [Unknown]
